FAERS Safety Report 4951653-0 (Version None)
Quarter: 2006Q1

REPORT INFORMATION
  Report Type: 
  Country: None (occurrence: None)
  Receive Date: 20060322
  Receipt Date: 20060322
  Transmission Date: 20060701
  Serious: No
  Sender: FDA-Public Use
  Company Number: None

PATIENT
  Age: 30 Year
  Sex: Male
  Weight: 72.5755 kg

DRUGS (1)
  1. ROGAINE [Suspect]
     Indication: ALOPECIA
     Dosage: 5 ML 2
     Dates: start: 20000101, end: 20060101

REACTIONS (3)
  - CARDIOVASCULAR DISORDER [None]
  - HEART RATE INCREASED [None]
  - HYPERTENSION [None]
